FAERS Safety Report 7760349-1 (Version None)
Quarter: 2011Q3

REPORT INFORMATION
  Report Type: 
  Country: None (occurrence: None)
  Receive Date: 20110919
  Receipt Date: 20110914
  Transmission Date: 20111222
  Serious: Yes (Other)
  Sender: FDA-Public Use
  Company Number: US-BAYER-2011-052721

PATIENT
  Age: 40 Year
  Sex: Male

DRUGS (3)
  1. BETASERON [Suspect]
     Indication: RELAPSING-REMITTING MULTIPLE SCLEROSIS
     Dosage: UNK
     Dates: start: 20000323, end: 20070406
  2. BETASERON [Suspect]
     Dosage: 8 MIU, QOD
  3. BETASERON [Suspect]
     Dosage: 8 MIU, QOD
     Dates: start: 20090422

REACTIONS (7)
  - MULTIPLE SCLEROSIS [None]
  - MOBILITY DECREASED [None]
  - MOTOR DYSFUNCTION [None]
  - ASTHENIA [None]
  - FATIGUE [None]
  - HYPOAESTHESIA [None]
  - FEELING ABNORMAL [None]
